FAERS Safety Report 25963406 (Version 3)
Quarter: 2025Q4

REPORT INFORMATION
  Report Type: Spontaneous
  Country: EU (occurrence: EU)
  Receive Date: 20251027
  Receipt Date: 20251113
  Transmission Date: 20260118
  Serious: Yes (Hospitalization, Other)
  Sender: NOVARTIS
  Company Number: EU-002147023-NVSC2025DE159617

PATIENT
  Age: 70 Year
  Sex: Female
  Weight: 64 kg

DRUGS (3)
  1. LUTATHERA [Suspect]
     Active Substance: LUTETIUM OXODOTREOTIDE LU-177
     Indication: Small intestine neuroendocrine tumour
     Dosage: 7.2 (1X)
     Route: 042
     Dates: start: 20250408, end: 20250408
  2. LUTATHERA [Suspect]
     Active Substance: LUTETIUM OXODOTREOTIDE LU-177
     Dosage: 7.4 (1X)
     Route: 042
     Dates: start: 20250617, end: 20250617
  3. SODIUM CHLORIDE [Concomitant]
     Active Substance: SODIUM CHLORIDE
     Indication: Nephroprotective therapy
     Dosage: UNK (1L)
     Route: 042
     Dates: start: 20250617, end: 20250617

REACTIONS (20)
  - Acute kidney injury [Recovered/Resolved with Sequelae]
  - Glomerulonephritis rapidly progressive [Unknown]
  - Tubulointerstitial nephritis [Recovered/Resolved with Sequelae]
  - Albuminuria [Recovered/Resolved with Sequelae]
  - Proteinuria [Recovered/Resolved with Sequelae]
  - Haematuria [Unknown]
  - Nausea [Unknown]
  - Decreased appetite [Unknown]
  - Lethargy [Unknown]
  - Anaemia [Recovered/Resolved with Sequelae]
  - Oesophageal ulcer [Unknown]
  - Pericardial effusion [Unknown]
  - Azotaemia [Unknown]
  - Urinary tract infection [Recovered/Resolved]
  - Metabolic acidosis [Unknown]
  - Dehydration [Recovered/Resolved]
  - Diarrhoea [Recovered/Resolved]
  - Pleural effusion [Unknown]
  - Gastrointestinal disorder [Unknown]
  - Off label use [Unknown]

NARRATIVE: CASE EVENT DATE: 20250101
